FAERS Safety Report 6085917-7 (Version None)
Quarter: 2009Q1

REPORT INFORMATION
  Report Type: 
  Country: None (occurrence: None)
  Receive Date: 20090220
  Receipt Date: 20090209
  Transmission Date: 20090719
  Serious: Yes (Other)
  Sender: FDA-Public Use
  Company Number: GB-ELI_LILLY_AND_COMPANY-GB200902002239

PATIENT
  Sex: Male

DRUGS (3)
  1. BYETTA [Suspect]
     Dosage: 5 UG, UNKNOWN
     Route: 065
     Dates: start: 20081209, end: 20090105
  2. BYETTA [Suspect]
     Dosage: 10 UG, UNKNOWN
     Route: 065
     Dates: start: 20090105, end: 20090107
  3. BYETTA [Suspect]
     Dosage: 5 UG, UNKNOWN
     Route: 065
     Dates: start: 20090107, end: 20090203

REACTIONS (1)
  - ATRIAL FIBRILLATION [None]
